FAERS Safety Report 24832233 (Version 1)
Quarter: 2025Q1

REPORT INFORMATION
  Report Type: Spontaneous
  Country: US (occurrence: US)
  Receive Date: 20250110
  Receipt Date: 20250110
  Transmission Date: 20250409
  Serious: Yes (Death)
  Sender: PFIZER
  Company Number: US-PFIZER INC-PV202500002491

PATIENT
  Age: 54 Year
  Sex: Male

DRUGS (3)
  1. ISOFLURANE [Suspect]
     Active Substance: ISOFLURANE
     Indication: General anaesthesia
  2. PROPOFOL [Suspect]
     Active Substance: PROPOFOL
     Indication: General anaesthesia
     Route: 042
  3. NITROUS OXIDE [Suspect]
     Active Substance: NITROUS OXIDE
     Indication: General anaesthesia

REACTIONS (2)
  - Nervous system disorder [Fatal]
  - Paraplegia [Fatal]
